FAERS Safety Report 16346142 (Version 2)
Quarter: 2021Q1

REPORT INFORMATION
  Report Type: Spontaneous
  Country: US (occurrence: US)
  Receive Date: 20190523
  Receipt Date: 20210218
  Transmission Date: 20210419
  Serious: Yes (Other)
  Sender: FDA-Public Use
  Company Number: US-TAKEDA-2019TUS031312

PATIENT

DRUGS (14)
  1. NEXIUM [Suspect]
     Active Substance: ESOMEPRAZOLE MAGNESIUM
     Indication: GASTROOESOPHAGEAL REFLUX DISEASE
     Dosage: 40 MILLIGRAM, QD
     Route: 048
     Dates: start: 2001, end: 2012
  2. CRESTOR [Concomitant]
     Active Substance: ROSUVASTATIN CALCIUM
     Indication: HYPERTENSION
  3. PREVACID [Suspect]
     Active Substance: LANSOPRAZOLE
     Indication: GASTROOESOPHAGEAL REFLUX DISEASE
     Dosage: UNK
     Route: 048
     Dates: start: 199803, end: 201203
  4. AVAPRO [Concomitant]
     Active Substance: IRBESARTAN
     Indication: HYPERTENSION
  5. RANITIDINE. [Concomitant]
     Active Substance: RANITIDINE
  6. LORAZEPAM. [Concomitant]
     Active Substance: LORAZEPAM
     Indication: SEIZURE
  7. MELOXICAM. [Concomitant]
     Active Substance: MELOXICAM
     Indication: ARTHRITIS
  8. PROAIR [FLUTICASONE PROPIONATE] [Concomitant]
     Active Substance: FLUTICASONE PROPIONATE
     Indication: CHRONIC OBSTRUCTIVE PULMONARY DISEASE
  9. ZOLPIDEM [Concomitant]
     Active Substance: ZOLPIDEM TARTRATE
     Indication: INSOMNIA
  10. TRAMADOL. [Concomitant]
     Active Substance: TRAMADOL
     Indication: NEUROPATHY PERIPHERAL
  11. PANTOPRAZOLE [Suspect]
     Active Substance: PANTOPRAZOLE
     Indication: GASTROOESOPHAGEAL REFLUX DISEASE
     Dosage: 40 MILLIGRAM, QD
     Route: 048
     Dates: end: 201705
  12. PRILOSEC [Suspect]
     Active Substance: OMEPRAZOLE MAGNESIUM
     Indication: GASTROOESOPHAGEAL REFLUX DISEASE
     Dosage: 20 MILLIGRAM, QD
     Route: 048
     Dates: start: 1998, end: 2012
  13. PRAVASTATIN. [Concomitant]
     Active Substance: PRAVASTATIN
     Indication: BLOOD CHOLESTEROL INCREASED
  14. FUROSEMIDE. [Concomitant]
     Active Substance: FUROSEMIDE
     Indication: OEDEMA

REACTIONS (1)
  - Chronic kidney disease [Not Recovered/Not Resolved]

NARRATIVE: CASE EVENT DATE: 2010
